FAERS Safety Report 15230331 (Version 1)
Quarter: 2018Q3

REPORT INFORMATION
  Report Type: Spontaneous
  Country: DE (occurrence: DE)
  Receive Date: 20180802
  Receipt Date: 20180802
  Transmission Date: 20181010
  Serious: Yes (Other)
  Sender: FDA-Public Use
  Company Number: DE-AUROBINDO-AUR-APL-2018-039291

PATIENT
  Age: 1 Day
  Sex: Female
  Weight: 2.31 kg

DRUGS (5)
  1. FOLSAEURE [Concomitant]
     Active Substance: FOLIC ACID
     Indication: PROPHYLAXIS OF NEURAL TUBE DEFECT
     Dosage: BEGIN GESTATIONAL WEEK 4 OR 12. PROBABLY 0.4 MG/D
     Route: 064
  2. CITALOPRAM [Suspect]
     Active Substance: CITALOPRAM HYDROBROMIDE
     Indication: DEPRESSION
     Dosage: 20 MILLIGRAM, DAILY
     Route: 064
     Dates: start: 20170421, end: 20180108
  3. CELESTAN                           /00008501/ [Concomitant]
     Active Substance: BETAMETHASONE
     Indication: MATERNAL THERAPY TO ENHANCE FOETAL LUNG MATURITY
     Dosage: 24 MILLIGRAM, DAILY
     Route: 064
  4. FRAGMIN [Concomitant]
     Active Substance: DALTEPARIN SODIUM
     Indication: THROMBOSIS PROPHYLAXIS
     Dosage: 5000 INTERNATIONAL UNIT, DAILY (BECAUSE OF BED REST AT CERVICAL INCOMPETENCE)
     Route: 064
  5. VAGI?HEX [Concomitant]
     Indication: VAGINAL INFECTION
     Dosage: 20 MILLIGRAM, DAILY
     Route: 064

REACTIONS (2)
  - Small for dates baby [Recovering/Resolving]
  - Foetal exposure during pregnancy [Unknown]

NARRATIVE: CASE EVENT DATE: 20180118
